FAERS Safety Report 6774447-2 (Version None)
Quarter: 2010Q2

REPORT INFORMATION
  Report Type: 
  Country: None (occurrence: None)
  Receive Date: 20100617
  Receipt Date: 20100604
  Transmission Date: 20101027
  Serious: Yes (Hospitalization)
  Sender: FDA-Public Use
  Company Number: PHHY2010US38354

PATIENT
  Sex: Male

DRUGS (1)
  1. MYCOPHENOLATE MOFETIL [Suspect]
     Indication: RENAL TRANSPLANT
     Dosage: 500 MG, QID
     Route: 048
     Dates: start: 20071117

REACTIONS (7)
  - ABDOMINAL PAIN [None]
  - CYTOMEGALOVIRUS INFECTION [None]
  - HYPOCALCAEMIA [None]
  - HYPOTENSION [None]
  - PANCYTOPENIA [None]
  - PNEUMONITIS [None]
  - SEPSIS [None]
